FAERS Safety Report 5265054-1 (Version None)
Quarter: 2007Q1

REPORT INFORMATION
  Report Type: 
  Country: None (occurrence: None)
  Receive Date: 20061121
  Receipt Date: 20060919
  Transmission Date: 20070707
  Serious: No
  Sender: FDA-Public Use
  Company Number: TPA2006A01257

PATIENT
  Age: 84 Year
  Sex: Female
  Weight: 59.8748 kg

DRUGS (17)
  1. ROZEREM [Suspect]
     Indication: INSOMNIA
     Dosage: 8 MG, QHS, PER ORAL
     Route: 048
     Dates: start: 20060725
  2. SYNTHROID [Concomitant]
  3. DIGOXIN [Concomitant]
  4. LOPID [Concomitant]
  5. PREDNISONE [Concomitant]
  6. DETROL [Concomitant]
  7. NEXIUM [Concomitant]
  8. CENTRUM SILVER (ASCORBIC ACID, TOCOPHERYL ACETATE, RETINOL, ZINC, CALC [Concomitant]
  9. OS-CAL D (COLECALCIFEROL, CALCIUM CARBONATE) [Concomitant]
  10. FISH OIL [Concomitant]
  11. PRIMIDONE [Concomitant]
  12. ZOCOR [Concomitant]
  13. AMBIEN [Concomitant]
  14. ZOLOFT [Concomitant]
  15. COUMADIN [Concomitant]
  16. FOSAMAX [Concomitant]
  17. SALICYCLIC ACID [Concomitant]

REACTIONS (5)
  - ASTHENIA [None]
  - DIZZINESS [None]
  - DRUG INEFFECTIVE [None]
  - FATIGUE [None]
  - MIDDLE INSOMNIA [None]
